FAERS Safety Report 25210311 (Version 3)
Quarter: 2025Q2

REPORT INFORMATION
  Report Type: Spontaneous
  Country: US (occurrence: US)
  Receive Date: 20250417
  Receipt Date: 20250521
  Transmission Date: 20250716
  Serious: No
  Sender: AMGEN
  Company Number: US-AMGEN-USASP2025073715

PATIENT
  Age: 69 Year
  Sex: Female
  Weight: 45.36 kg

DRUGS (1)
  1. NEULASTA [Suspect]
     Active Substance: PEGFILGRASTIM
     Indication: Product used for unknown indication
     Route: 058
     Dates: start: 20250327

REACTIONS (1)
  - Intercepted product administration error [Recovered/Resolved]

NARRATIVE: CASE EVENT DATE: 20250327
